FAERS Safety Report 15371480 (Version 1)
Quarter: 2018Q3

REPORT INFORMATION
  Report Type: Spontaneous
  Country: FR (occurrence: FR)
  Receive Date: 20180911
  Receipt Date: 20180911
  Transmission Date: 20181010
  Serious: Yes (Hospitalization)
  Sender: FDA-Public Use
  Company Number: FR-TEVA-2018-FR-953499

PATIENT
  Age: 53 Year
  Sex: Male

DRUGS (4)
  1. LOXAPAC [Suspect]
     Active Substance: LOXAPINE
     Indication: CHILDHOOD PSYCHOSIS
     Dosage: 150 MILLIEQUIVALENTS DAILY;
     Route: 048
  2. LAMOTRIGINE. [Suspect]
     Active Substance: LAMOTRIGINE
     Indication: CHILDHOOD PSYCHOSIS
     Dosage: 200 MILLIGRAM DAILY;
     Route: 048
  3. CLOZAPINE. [Suspect]
     Active Substance: CLOZAPINE
     Indication: CHILDHOOD PSYCHOSIS
     Dosage: 500 MILLIGRAM DAILY;
     Route: 048
  4. TRANXENE [Suspect]
     Active Substance: CLORAZEPATE DIPOTASSIUM
     Indication: CHILDHOOD PSYCHOSIS
     Dosage: 75 MILLIGRAM DAILY;
     Route: 048

REACTIONS (2)
  - Orthostatic hypotension [Not Recovered/Not Resolved]
  - Fall [Not Recovered/Not Resolved]

NARRATIVE: CASE EVENT DATE: 2016
